FAERS Safety Report 8621741-6 (Version None)
Quarter: 2012Q3

REPORT INFORMATION
  Report Type: 
  Country: None (occurrence: None)
  Receive Date: 20120821
  Receipt Date: 20120821
  Transmission Date: 20120928
  Serious: Yes (Life-Threatening)
  Sender: FDA-Public Use
  Company Number: None

PATIENT
  Age: 94 Year
  Sex: Male
  Weight: 62 kg

DRUGS (1)
  1. LISINOPRIL [Suspect]
     Indication: HYPERTENSION
     Dosage: 5 MG, DAILY, BY MOUTH
     Dates: start: 20111201, end: 20120301

REACTIONS (3)
  - LUNG DISORDER [None]
  - SWELLING [None]
  - UPPER AIRWAY OBSTRUCTION [None]
